FAERS Safety Report 5272014-3 (Version None)
Quarter: 2007Q1

REPORT INFORMATION
  Report Type: 
  Country: None (occurrence: None)
  Receive Date: 20070322
  Receipt Date: 20070319
  Transmission Date: 20070707
  Serious: Yes (Other)
  Sender: FDA-Public Use
  Company Number: US-RB-005581-07

PATIENT
  Sex: Female

DRUGS (3)
  1. SUBOXONE [Suspect]
     Dosage: MD ORDERED 2 MG TID
     Route: 060
     Dates: start: 20070201, end: 20070301
  2. SUBOXONE [Suspect]
     Dosage: MD ORDERED 8 MG TID
     Route: 060
     Dates: start: 20070301
  3. XANAX [Concomitant]
     Indication: ANXIETY
     Dosage: TAKES PRN
     Route: 048

REACTIONS (3)
  - CHEST PAIN [None]
  - DYSPNOEA [None]
  - PALPITATIONS [None]
